FAERS Safety Report 21503435 (Version 4)
Quarter: 2025Q1

REPORT INFORMATION
  Report Type: Spontaneous
  Country: US (occurrence: US)
  Receive Date: 20221025
  Receipt Date: 20250206
  Transmission Date: 20250409
  Serious: No
  Sender: PFIZER
  Company Number: US-PFIZER INC-202201250278

PATIENT
  Age: 65 Year
  Sex: Female

DRUGS (6)
  1. IBRANCE [Suspect]
     Active Substance: PALBOCICLIB
     Route: 048
     Dates: start: 20221002
  2. IBRANCE [Suspect]
     Active Substance: PALBOCICLIB
  3. EXEMESTANE [Concomitant]
     Active Substance: EXEMESTANE
  4. PROCHLORPERAZINE MALEATE [Concomitant]
     Active Substance: PROCHLORPERAZINE MALEATE
  5. LEVOTHYROXINE [Concomitant]
     Active Substance: LEVOTHYROXINE
  6. BUPROPION [Concomitant]
     Active Substance: BUPROPION

REACTIONS (10)
  - Malaise [Unknown]
  - Fatigue [Unknown]
  - Nausea [Unknown]
  - Sinusitis [Unknown]
  - Dizziness [Unknown]
  - Pain [Unknown]
  - Respiratory disorder [Unknown]
  - Cough [Unknown]
  - Arthralgia [Unknown]
  - Arthritis [Unknown]

NARRATIVE: CASE EVENT DATE: 20221001
